FAERS Safety Report 23107943 (Version 2)
Quarter: 2023Q4

REPORT INFORMATION
  Report Type: Spontaneous
  Country: DE (occurrence: DE)
  Receive Date: 20231026
  Receipt Date: 20231201
  Transmission Date: 20240109
  Serious: Yes (Death, Hospitalization, Other)
  Sender: FDA-Public Use
  Company Number: DE-AUROBINDO-AUR-APL-2023-065180

PATIENT
  Age: 61 Year
  Sex: Male
  Weight: 80 kg

DRUGS (7)
  1. CLOPIDOGREL [Suspect]
     Active Substance: CLOPIDOGREL BISULFATE
     Indication: Anticoagulant therapy
     Dosage: 75 MILLIGRAM
     Route: 048
     Dates: start: 20231010
  2. SPIRONOLACTONE [Concomitant]
     Active Substance: SPIRONOLACTONE
     Indication: Cardiac failure
     Dosage: 100 MILLIGRAM, ONCE A DAY
     Route: 048
  3. TORSEMIDE [Concomitant]
     Active Substance: TORSEMIDE
     Indication: Cardiac failure
     Dosage: UNK UNK, TWO TIMES A DAY
     Route: 048
  4. TAMSULOSIN [Concomitant]
     Active Substance: TAMSULOSIN
     Indication: Cardiac failure
     Dosage: 0.4 MILLIGRAM
     Route: 048
  5. CARVEDILOL [Concomitant]
     Active Substance: CARVEDILOL
     Indication: Cardiac failure
     Dosage: 6.25 MILLIGRAM, ONCE A DAY
     Route: 048
  6. TINZAPARIN [Concomitant]
     Active Substance: TINZAPARIN
     Indication: Anticoagulant therapy
     Dosage: UNK
     Route: 065
  7. VITAMIN B1 [Concomitant]
     Active Substance: THIAMINE HYDROCHLORIDE
     Indication: Nutritional supplement allergy
     Dosage: UNK
     Route: 048

REACTIONS (9)
  - Urinary tract obstruction [Fatal]
  - Cardiovascular disorder [Fatal]
  - Dizziness [Fatal]
  - Somnolence [Fatal]
  - Jaundice [Fatal]
  - Confusional state [Fatal]
  - Liver function test abnormal [Fatal]
  - Hepatic cirrhosis [Unknown]
  - Condition aggravated [Unknown]

NARRATIVE: CASE EVENT DATE: 20231010
